FAERS Safety Report 13304678 (Version 1)
Quarter: 2017Q1

REPORT INFORMATION
  Report Type: Spontaneous
  Country: US (occurrence: US)
  Receive Date: 20170307
  Receipt Date: 20170307
  Transmission Date: 20170428
  Serious: Yes (Disabling)
  Sender: FDA-Public Use
  Company Number: None

PATIENT
  Age: 7 Year
  Sex: Female

DRUGS (2)
  1. PROBIOTICS [Concomitant]
     Active Substance: PROBIOTICS NOS
  2. UP AND UP POWDERLAX [Suspect]
     Active Substance: POLYETHYLENE GLYCOL 3350
     Indication: CONSTIPATION
     Dosage: ?          QUANTITY:1 TABLESPOON(S);?
     Route: 048

REACTIONS (4)
  - Depressed mood [None]
  - Attention deficit/hyperactivity disorder [None]
  - Personality disorder [None]
  - Sensory processing disorder [None]

NARRATIVE: CASE EVENT DATE: 20120328
